FAERS Safety Report 24627108 (Version 1)
Quarter: 2024Q4

REPORT INFORMATION
  Report Type: Spontaneous
  Country: NP (occurrence: NP)
  Receive Date: 20241116
  Receipt Date: 20241116
  Transmission Date: 20250114
  Serious: Yes (Hospitalization)
  Sender: ACCORD
  Company Number: NP-MLMSERVICE-20241030-PI243929-00306-1

PATIENT
  Age: 22 Year
  Sex: Male
  Weight: 35 kg

DRUGS (8)
  1. TACROLIMUS [Suspect]
     Active Substance: TACROLIMUS
     Indication: Chronic graft versus host disease
     Dates: start: 2019
  2. PREDNISOLONE [Suspect]
     Active Substance: PREDNISOLONE
     Indication: Chronic graft versus host disease
     Dates: start: 2019
  3. ACYCLOVIR [Concomitant]
     Active Substance: ACYCLOVIR
  4. AZITHROMYCIN [Concomitant]
     Active Substance: AZITHROMYCIN
  5. FLUCONAZOLE [Concomitant]
     Active Substance: FLUCONAZOLE
  6. FOSCARNET [Concomitant]
     Active Substance: FOSCARNET
  7. ALBUTEROL [Concomitant]
     Active Substance: ALBUTEROL
     Route: 042
  8. MONTELUKAST [Concomitant]
     Active Substance: MONTELUKAST

REACTIONS (3)
  - Candida infection [Recovered/Resolved]
  - Candida pneumonia [Recovered/Resolved]
  - Malnutrition [Recovered/Resolved]

NARRATIVE: CASE EVENT DATE: 20230101
